FAERS Safety Report 8368189-X (Version None)
Quarter: 2012Q2

REPORT INFORMATION
  Report Type: 
  Country: None (occurrence: None)
  Receive Date: 20120517
  Receipt Date: 20120507
  Transmission Date: 20120825
  Serious: Yes (Other)
  Sender: FDA-Public Use
  Company Number: US-ELI_LILLY_AND_COMPANY-US201205002565

PATIENT
  Sex: Female
  Weight: 88.435 kg

DRUGS (4)
  1. BYETTA [Suspect]
     Indication: TYPE 2 DIABETES MELLITUS
     Dosage: 5 UG, BID
     Route: 058
     Dates: start: 20120301
  2. BYETTA [Suspect]
     Dosage: 10 UG, BID
     Route: 058
     Dates: start: 20120401
  3. CORTICOSTEROID NOS [Concomitant]
     Indication: CANDIDIASIS
     Dosage: UNK
     Route: 008
     Dates: start: 20120401, end: 20120401
  4. GLUCOPHAGE [Concomitant]
     Indication: TYPE 2 DIABETES MELLITUS
     Dosage: 500 MG, BID
     Route: 048

REACTIONS (3)
  - NAUSEA [None]
  - ORAL CANDIDIASIS [None]
  - BLOOD GLUCOSE INCREASED [None]
